FAERS Safety Report 5189596-2 (Version None)
Quarter: 2006Q4

REPORT INFORMATION
  Report Type: 
  Country: None (occurrence: None)
  Receive Date: 20061221
  Receipt Date: 20060221
  Transmission Date: 20070319
  Serious: No
  Sender: FDA-Public Use
  Company Number: US-AMGEN-US169744

PATIENT
  Sex: Female

DRUGS (1)
  1. ENBREL [Suspect]
     Indication: PSORIASIS
     Route: 065
     Dates: start: 20060201

REACTIONS (4)
  - ACCIDENTAL OVERDOSE [None]
  - MYALGIA [None]
  - NAUSEA [None]
  - VOMITING [None]
